FAERS Safety Report 4908559-2 (Version None)
Quarter: 2006Q1

REPORT INFORMATION
  Report Type: 
  Country: None (occurrence: None)
  Receive Date: 20060210
  Receipt Date: 20050826
  Transmission Date: 20060701
  Serious: No
  Sender: FDA-Public Use
  Company Number: US-GLAXOSMITHKLINE-A0571959A

PATIENT
  Age: 73 Year
  Sex: Female

DRUGS (8)
  1. PAXIL CR [Suspect]
     Indication: DEPRESSION
     Dosage: 37.5MG TWICE PER DAY
     Route: 048
     Dates: start: 20050722
  2. LEVODOPA [Concomitant]
  3. REQUIP [Concomitant]
  4. SINEMET [Concomitant]
  5. SINEMET CR [Concomitant]
  6. WELLBUTRIN XL [Concomitant]
  7. FOSAMAX [Concomitant]
  8. XANAX [Concomitant]

REACTIONS (5)
  - BLOOD PRESSURE INCREASED [None]
  - HEART RATE INCREASED [None]
  - MENTAL IMPAIRMENT [None]
  - MOVEMENT DISORDER [None]
  - PAIN IN EXTREMITY [None]
